FAERS Safety Report 4505881-9 (Version None)
Quarter: 2004Q4

REPORT INFORMATION
  Report Type: 
  Country: None (occurrence: None)
  Receive Date: 20041025
  Receipt Date: 20040427
  Transmission Date: 20050328
  Serious: Yes (Hospitalization)
  Sender: FDA-Public Use
  Company Number: US-JNJFOC-20040301768

PATIENT
  Age: 49 Year
  Sex: Female

DRUGS (13)
  1. REMICADE [Suspect]
     Indication: CROHN'S DISEASE
     Dosage: INTRAVENOUS
     Route: 042
  2. NEXIUM [Concomitant]
  3. IMURAN [Concomitant]
  4. BEXTRA [Concomitant]
  5. BACLOFEN [Concomitant]
  6. PROZAC [Concomitant]
  7. KLONOPIN [Concomitant]
  8. LOMOTIL [Concomitant]
  9. TYLENOL W/ CODEINE NO. 3 [Concomitant]
  10. PERCOCET [Concomitant]
  11. PHENERGAN [Concomitant]
  12. FIBERCON (POLYCARBOPHIL CALCIUM) [Concomitant]
  13. TALACEN (FORTAGESIC) [Concomitant]

REACTIONS (3)
  - ARTHRITIS [None]
  - LUPUS-LIKE SYNDROME [None]
  - VASCULITIS [None]
